FAERS Safety Report 8231066-9 (Version None)
Quarter: 2012Q1

REPORT INFORMATION
  Report Type: 
  Country: None (occurrence: None)
  Receive Date: 20120321
  Receipt Date: 20120306
  Transmission Date: 20120608
  Serious: Yes (Hospitalization)
  Sender: FDA-Public Use
  Company Number: UTC-015498

PATIENT
  Age: 68 Year
  Sex: Male
  Weight: 113.1 kg

DRUGS (5)
  1. TRACLEER [Concomitant]
  2. REVATIO [Concomitant]
  3. COUMADIN [Concomitant]
  4. DIURETICS (DIURETICS) [Concomitant]
  5. REMODULIN [Suspect]
     Indication: PULMONARY HYPERTENSION
     Dosage: 36 UG/KG (0.025 UG/KG, 1 IN 1 MIN), SUBCUTANEOUS
     Route: 058
     Dates: start: 20100920

REACTIONS (2)
  - LOSS OF CONSCIOUSNESS [None]
  - SUBDURAL HAEMATOMA [None]
